FAERS Safety Report 18104520 (Version 1)
Quarter: 2020Q3

REPORT INFORMATION
  Report Type: Spontaneous
  Country: US (occurrence: US)
  Receive Date: 20200803
  Receipt Date: 20200803
  Transmission Date: 20201103
  Serious: Yes (Death)
  Sender: FDA-Public Use
  Company Number: None

PATIENT
  Age: 92 Year
  Sex: Male

DRUGS (2)
  1. SIROLIMUS. [Suspect]
     Active Substance: SIROLIMUS
     Indication: HEART TRANSPLANT
     Route: 048
     Dates: start: 20181226, end: 20200727
  2. MYCOPHENOLATE 250MG [Concomitant]
     Active Substance: MYCOPHENOLIC ACID
     Dates: start: 20181023, end: 20200727

REACTIONS (2)
  - Transplant rejection [None]
  - Hypertension [None]

NARRATIVE: CASE EVENT DATE: 20200727
